FAERS Safety Report 5672902-X (Version None)
Quarter: 2008Q1

REPORT INFORMATION
  Report Type: 
  Country: None (occurrence: None)
  Receive Date: 20080319
  Receipt Date: 20080312
  Transmission Date: 20080703
  Serious: Yes (Hospitalization)
  Sender: FDA-Public Use
  Company Number: A0703688A

PATIENT
  Age: 57 Year
  Sex: Female
  Weight: 46.6 kg

DRUGS (3)
  1. TOPOTECAN [Suspect]
     Indication: OVARIAN CANCER
     Dosage: .8MG CYCLIC
     Route: 042
     Dates: start: 20071110, end: 20071122
  2. INVESTIGATIONAL DRUG [Suspect]
     Indication: OVARIAN CANCER
     Dosage: 10MG TWICE PER DAY
     Route: 048
     Dates: start: 20071118, end: 20071124
  3. MECLIZINE [Concomitant]

REACTIONS (11)
  - ANOREXIA [None]
  - BLOOD CREATININE INCREASED [None]
  - DEHYDRATION [None]
  - DIZZINESS [None]
  - FAILURE TO THRIVE [None]
  - GRANULOCYTE COUNT DECREASED [None]
  - INFECTION [None]
  - NEUTROPHIL COUNT ABNORMAL [None]
  - NEUTROPHIL COUNT DECREASED [None]
  - VERTIGO [None]
  - WHITE BLOOD CELL COUNT DECREASED [None]
